FAERS Safety Report 9224356 (Version 2)
Quarter: 2013Q2

REPORT INFORMATION
  Report Type: Report from Study
  Country: CA (occurrence: CA)
  Receive Date: 20130411
  Receipt Date: 20130612
  Transmission Date: 20140414
  Serious: Yes (Other)
  Sender: FDA-Public Use
  Company Number: PHHY2013CA034839

PATIENT
  Age: 62 Year
  Sex: Female

DRUGS (3)
  1. DIOVAN [Suspect]
     Indication: HYPERTENSION
     Dosage: UNK UKN, UNK
     Route: 048
     Dates: end: 201305
  2. NORVASC [Concomitant]
     Dosage: UNK UKN, UNK
  3. PROTEIN SUPPLEMENTS [Concomitant]
     Dosage: UNK UKN, UNK

REACTIONS (5)
  - Gastrointestinal stromal tumour [Unknown]
  - Abdominal rigidity [Unknown]
  - Abdominal pain [Unknown]
  - Decreased appetite [Unknown]
  - Weight fluctuation [Unknown]
